FAERS Safety Report 8110049-3 (Version None)
Quarter: 2012Q1

REPORT INFORMATION
  Report Type: 
  Country: None (occurrence: None)
  Receive Date: 20120202
  Receipt Date: 20120104
  Transmission Date: 20120608
  Serious: Yes (Death)
  Sender: FDA-Public Use
  Company Number: US-COVIDIEN/TYCO HEALTHCARE/MALLINCKRODT-T201200134

PATIENT
  Age: 38 Year
  Sex: Female

DRUGS (6)
  1. LORAZEPAM [Suspect]
     Route: 048
  2. NAPROXEN [Suspect]
     Route: 048
  3. CITALOPRAM HYDROBROMIDE [Suspect]
     Route: 048
  4. FLUOXETINE [Suspect]
     Route: 048
  5. METHADOSE [Suspect]
     Route: 048
  6. CETIRIZINE [Suspect]
     Route: 048

REACTIONS (2)
  - CARDIO-RESPIRATORY ARREST [None]
  - COMPLETED SUICIDE [None]
